FAERS Safety Report 7313539-6 (Version None)
Quarter: 2011Q1

REPORT INFORMATION
  Report Type: 
  Country: None (occurrence: None)
  Receive Date: 20110225
  Receipt Date: 20110222
  Transmission Date: 20110831
  Serious: Yes (Hospitalization, Other)
  Sender: FDA-Public Use
  Company Number: US-PFIZER INC-HQ4114609SEP2002

PATIENT
  Sex: Female
  Weight: 77 kg

DRUGS (10)
  1. PROVERA [Suspect]
     Indication: HORMONE REPLACEMENT THERAPY
     Dosage: 2.5 UNK, UNK
     Route: 048
     Dates: start: 19910101, end: 19980706
  2. ALBUTEROL [Concomitant]
     Indication: CHRONIC OBSTRUCTIVE PULMONARY DISEASE
     Dosage: UNK
     Dates: start: 20000101
  3. PREMARIN [Suspect]
     Indication: HORMONE REPLACEMENT THERAPY
     Dosage: 0.625 UNK, UNK
     Dates: start: 19910101, end: 19980706
  4. CELEBREX [Concomitant]
     Indication: RHEUMATOID ARTHRITIS
     Dosage: 200 MG, 2X/DAY
     Dates: start: 19990101
  5. SYNTHROID [Concomitant]
     Indication: HYPOTHYROIDISM
     Dosage: 125 MG, UNK
     Dates: start: 19950101
  6. NORVASC [Concomitant]
     Indication: HYPERTENSION
     Dosage: 5 MG, UNK
     Dates: start: 19970701, end: 20030101
  7. PREMPRO [Suspect]
     Indication: HORMONE REPLACEMENT THERAPY
     Dosage: 0.625/2.5
     Route: 048
     Dates: start: 19980706, end: 20020501
  8. PROZAC [Concomitant]
     Indication: DEPRESSION
     Dosage: 40 MG, UNK
     Dates: start: 19940101
  9. PLAQUENIL [Concomitant]
     Indication: PALINDROMIC RHEUMATISM
     Dosage: 200 MG, UNK
     Dates: start: 19930101
  10. ADVAIR DISKUS 100/50 [Concomitant]
     Indication: CHRONIC OBSTRUCTIVE PULMONARY DISEASE
     Dosage: UNK
     Dates: start: 20000101

REACTIONS (1)
  - BREAST CANCER FEMALE [None]
